FAERS Safety Report 4895747-7 (Version None)
Quarter: 2005Q4

REPORT INFORMATION
  Report Type: 
  Country: None (occurrence: None)
  Receive Date: 20051223
  Receipt Date: 20050826
  Transmission Date: 20060501
  Serious: No
  Sender: FDA-Public Use
  Company Number: 216403

PATIENT
  Age: 44 Year
  Sex: Male
  Weight: 89.4 kg

DRUGS (9)
  1. AVASTIN [Suspect]
     Indication: COLON CANCER METASTATIC
     Dosage: 5 MG/KG, Q2W, INTRAVENOUS
     Route: 042
     Dates: start: 20040308
  2. IRINOTECAN HCL [Concomitant]
  3. FLUOROURACIL [Concomitant]
  4. LEUCOVORIN CALCIUM [Concomitant]
  5. FLONASE [Concomitant]
  6. ATIVAN [Concomitant]
  7. ADVAIR DISKUS 100/50 [Concomitant]
  8. PREVACID [Concomitant]
  9. REGLAN [Concomitant]

REACTIONS (1)
  - ASTHMA [None]
